FAERS Safety Report 8499279-9 (Version None)
Quarter: 2012Q2

REPORT INFORMATION
  Report Type: 
  Country: None (occurrence: None)
  Receive Date: 20120611
  Receipt Date: 20120601
  Transmission Date: 20120825
  Serious: Yes (Other)
  Sender: FDA-Public Use
  Company Number: 2012031831

PATIENT
  Sex: Female
  Weight: 61.2356 kg

DRUGS (53)
  1. VIVAGLOBIN [Suspect]
  2. VIVAGLOBIN [Suspect]
  3. VIVAGLOBIN [Suspect]
  4. VIVAGLOBIN [Suspect]
  5. VIVAGLOBIN [Suspect]
     Indication: HYPOGAMMAGLOBULINAEMIA
     Dosage: 9.6 G 2X/WEEK, STOP DAY MAY 2011 SUBCUTANEOUS, (9.6 G 2X/WEEK, STOP DAY MAY 2011 SUBCUTANEOUS
     Route: 058
     Dates: start: 20100607
  6. VIVAGLOBIN [Suspect]
     Indication: IMMUNODEFICIENCY COMMON VARIABLE
     Dosage: 9.6 G 2X/WEEK, STOP DAY MAY 2011 SUBCUTANEOUS, (9.6 G 2X/WEEK, STOP DAY MAY 2011 SUBCUTANEOUS
     Route: 058
     Dates: start: 20100607
  7. VIVAGLOBIN [Suspect]
     Indication: HYPOGAMMAGLOBULINAEMIA
     Dosage: 9.6 G 2X/WEEK, STOP DAY MAY 2011 SUBCUTANEOUS, (9.6 G 2X/WEEK, STOP DAY MAY 2011 SUBCUTANEOUS
     Route: 058
     Dates: start: 20100118
  8. VIVAGLOBIN [Suspect]
     Indication: IMMUNODEFICIENCY COMMON VARIABLE
     Dosage: 9.6 G 2X/WEEK, STOP DAY MAY 2011 SUBCUTANEOUS, (9.6 G 2X/WEEK, STOP DAY MAY 2011 SUBCUTANEOUS
     Route: 058
     Dates: start: 20100118
  9. VIVAGLOBIN [Suspect]
     Indication: HYPOGAMMAGLOBULINAEMIA
     Dosage: 9.6 G 2X/WEEK, STOP DAY MAY 2011 SUBCUTANEOUS, (9.6 G 2X/WEEK, STOP DAY MAY 2011 SUBCUTANEOUS
     Route: 058
     Dates: start: 20100928
  10. VIVAGLOBIN [Suspect]
     Indication: IMMUNODEFICIENCY COMMON VARIABLE
     Dosage: 9.6 G 2X/WEEK, STOP DAY MAY 2011 SUBCUTANEOUS, (9.6 G 2X/WEEK, STOP DAY MAY 2011 SUBCUTANEOUS
     Route: 058
     Dates: start: 20100928
  11. VIVAGLOBIN [Suspect]
     Indication: HYPOGAMMAGLOBULINAEMIA
     Dosage: 9.6 G 2X/WEEK, STOP DAY MAY 2011 SUBCUTANEOUS, (9.6 G 2X/WEEK, STOP DAY MAY 2011 SUBCUTANEOUS
     Route: 058
     Dates: start: 20091117
  12. VIVAGLOBIN [Suspect]
     Indication: IMMUNODEFICIENCY COMMON VARIABLE
     Dosage: 9.6 G 2X/WEEK, STOP DAY MAY 2011 SUBCUTANEOUS, (9.6 G 2X/WEEK, STOP DAY MAY 2011 SUBCUTANEOUS
     Route: 058
     Dates: start: 20091117
  13. VIVAGLOBIN [Suspect]
     Indication: HYPOGAMMAGLOBULINAEMIA
     Dosage: 9.6 G 2X/WEEK, STOP DAY MAY 2011 SUBCUTANEOUS, (9.6 G 2X/WEEK, STOP DAY MAY 2011 SUBCUTANEOUS
     Route: 058
     Dates: start: 20100831
  14. VIVAGLOBIN [Suspect]
     Indication: IMMUNODEFICIENCY COMMON VARIABLE
     Dosage: 9.6 G 2X/WEEK, STOP DAY MAY 2011 SUBCUTANEOUS, (9.6 G 2X/WEEK, STOP DAY MAY 2011 SUBCUTANEOUS
     Route: 058
     Dates: start: 20100831
  15. VIVAGLOBIN [Suspect]
     Indication: HYPOGAMMAGLOBULINAEMIA
     Dosage: 9.6 G 2X/WEEK, STOP DAY MAY 2011 SUBCUTANEOUS, (9.6 G 2X/WEEK, STOP DAY MAY 2011 SUBCUTANEOUS
     Route: 058
     Dates: start: 20110329
  16. VIVAGLOBIN [Suspect]
     Indication: IMMUNODEFICIENCY COMMON VARIABLE
     Dosage: 9.6 G 2X/WEEK, STOP DAY MAY 2011 SUBCUTANEOUS, (9.6 G 2X/WEEK, STOP DAY MAY 2011 SUBCUTANEOUS
     Route: 058
     Dates: start: 20110329
  17. VIVAGLOBIN [Suspect]
     Indication: HYPOGAMMAGLOBULINAEMIA
     Dosage: 9.6 G 2X/WEEK, STOP DAY MAY 2011 SUBCUTANEOUS, (9.6 G 2X/WEEK, STOP DAY MAY 2011 SUBCUTANEOUS
     Route: 058
     Dates: start: 20091117
  18. VIVAGLOBIN [Suspect]
     Indication: IMMUNODEFICIENCY COMMON VARIABLE
     Dosage: 9.6 G 2X/WEEK, STOP DAY MAY 2011 SUBCUTANEOUS, (9.6 G 2X/WEEK, STOP DAY MAY 2011 SUBCUTANEOUS
     Route: 058
     Dates: start: 20091117
  19. VIVAGLOBIN [Suspect]
     Indication: HYPOGAMMAGLOBULINAEMIA
     Dosage: 9.6 G 2X/WEEK, STOP DAY MAY 2011 SUBCUTANEOUS, (9.6 G 2X/WEEK, STOP DAY MAY 2011 SUBCUTANEOUS
     Route: 058
     Dates: start: 20091215
  20. VIVAGLOBIN [Suspect]
     Indication: IMMUNODEFICIENCY COMMON VARIABLE
     Dosage: 9.6 G 2X/WEEK, STOP DAY MAY 2011 SUBCUTANEOUS, (9.6 G 2X/WEEK, STOP DAY MAY 2011 SUBCUTANEOUS
     Route: 058
     Dates: start: 20091215
  21. VIVAGLOBIN [Suspect]
     Indication: HYPOGAMMAGLOBULINAEMIA
     Dosage: 9.6 G 2X/WEEK, STOP DAY MAY 2011 SUBCUTANEOUS, (9.6 G 2X/WEEK, STOP DAY MAY 2011 SUBCUTANEOUS
     Route: 058
     Dates: start: 20101221
  22. VIVAGLOBIN [Suspect]
     Indication: IMMUNODEFICIENCY COMMON VARIABLE
     Dosage: 9.6 G 2X/WEEK, STOP DAY MAY 2011 SUBCUTANEOUS, (9.6 G 2X/WEEK, STOP DAY MAY 2011 SUBCUTANEOUS
     Route: 058
     Dates: start: 20101221
  23. VIVAGLOBIN [Suspect]
     Indication: HYPOGAMMAGLOBULINAEMIA
     Dosage: 9.6 G 2X/WEEK, STOP DAY MAY 2011 SUBCUTANEOUS, (9.6 G 2X/WEEK, STOP DAY MAY 2011 SUBCUTANEOUS
     Route: 058
     Dates: start: 20100316
  24. VIVAGLOBIN [Suspect]
     Indication: IMMUNODEFICIENCY COMMON VARIABLE
     Dosage: 9.6 G 2X/WEEK, STOP DAY MAY 2011 SUBCUTANEOUS, (9.6 G 2X/WEEK, STOP DAY MAY 2011 SUBCUTANEOUS
     Route: 058
     Dates: start: 20100316
  25. VIVAGLOBIN [Suspect]
     Indication: HYPOGAMMAGLOBULINAEMIA
     Dosage: 9.6 G 2X/WEEK, STOP DAY MAY 2011 SUBCUTANEOUS, (9.6 G 2X/WEEK, STOP DAY MAY 2011 SUBCUTANEOUS
     Route: 058
     Dates: start: 20110427
  26. VIVAGLOBIN [Suspect]
     Indication: IMMUNODEFICIENCY COMMON VARIABLE
     Dosage: 9.6 G 2X/WEEK, STOP DAY MAY 2011 SUBCUTANEOUS, (9.6 G 2X/WEEK, STOP DAY MAY 2011 SUBCUTANEOUS
     Route: 058
     Dates: start: 20110427
  27. VIVAGLOBIN [Suspect]
     Indication: HYPOGAMMAGLOBULINAEMIA
     Dosage: 9.6 G 2X/WEEK, STOP DAY MAY 2011 SUBCUTANEOUS, (9.6 G 2X/WEEK, STOP DAY MAY 2011 SUBCUTANEOUS
     Route: 058
     Dates: start: 20100803
  28. VIVAGLOBIN [Suspect]
     Indication: IMMUNODEFICIENCY COMMON VARIABLE
     Dosage: 9.6 G 2X/WEEK, STOP DAY MAY 2011 SUBCUTANEOUS, (9.6 G 2X/WEEK, STOP DAY MAY 2011 SUBCUTANEOUS
     Route: 058
     Dates: start: 20100803
  29. VIVAGLOBIN [Suspect]
     Indication: HYPOGAMMAGLOBULINAEMIA
     Dosage: 9.6 G 2X/WEEK, STOP DAY MAY 2011 SUBCUTANEOUS, (9.6 G 2X/WEEK, STOP DAY MAY 2011 SUBCUTANEOUS
     Route: 058
     Dates: start: 20101026
  30. VIVAGLOBIN [Suspect]
     Indication: IMMUNODEFICIENCY COMMON VARIABLE
     Dosage: 9.6 G 2X/WEEK, STOP DAY MAY 2011 SUBCUTANEOUS, (9.6 G 2X/WEEK, STOP DAY MAY 2011 SUBCUTANEOUS
     Route: 058
     Dates: start: 20101026
  31. VIVAGLOBIN [Suspect]
     Indication: HYPOGAMMAGLOBULINAEMIA
     Dosage: 9.6 G 2X/WEEK, STOP DAY MAY 2011 SUBCUTANEOUS, (9.6 G 2X/WEEK, STOP DAY MAY 2011 SUBCUTANEOUS
     Route: 058
     Dates: start: 20110106
  32. VIVAGLOBIN [Suspect]
     Indication: IMMUNODEFICIENCY COMMON VARIABLE
     Dosage: 9.6 G 2X/WEEK, STOP DAY MAY 2011 SUBCUTANEOUS, (9.6 G 2X/WEEK, STOP DAY MAY 2011 SUBCUTANEOUS
     Route: 058
     Dates: start: 20110106
  33. VIVAGLOBIN [Suspect]
     Indication: HYPOGAMMAGLOBULINAEMIA
     Dosage: 9.6 G 2X/WEEK, STOP DAY MAY 2011 SUBCUTANEOUS, (9.6 G 2X/WEEK, STOP DAY MAY 2011 SUBCUTANEOUS
     Route: 058
     Dates: start: 20110222
  34. VIVAGLOBIN [Suspect]
     Indication: IMMUNODEFICIENCY COMMON VARIABLE
     Dosage: 9.6 G 2X/WEEK, STOP DAY MAY 2011 SUBCUTANEOUS, (9.6 G 2X/WEEK, STOP DAY MAY 2011 SUBCUTANEOUS
     Route: 058
     Dates: start: 20110222
  35. VIVAGLOBIN [Suspect]
     Indication: HYPOGAMMAGLOBULINAEMIA
     Dosage: 9.6 G 2X/WEEK, STOP DAY MAY 2011 SUBCUTANEOUS, (9.6 G 2X/WEEK, STOP DAY MAY 2011 SUBCUTANEOUS
     Route: 058
     Dates: start: 20100216
  36. VIVAGLOBIN [Suspect]
     Indication: IMMUNODEFICIENCY COMMON VARIABLE
     Dosage: 9.6 G 2X/WEEK, STOP DAY MAY 2011 SUBCUTANEOUS, (9.6 G 2X/WEEK, STOP DAY MAY 2011 SUBCUTANEOUS
     Route: 058
     Dates: start: 20100216
  37. VIVAGLOBIN [Suspect]
     Indication: HYPOGAMMAGLOBULINAEMIA
     Dosage: 9.6 G 2X/WEEK, STOP DAY MAY 2011 SUBCUTANEOUS, (9.6 G 2X/WEEK, STOP DAY MAY 2011 SUBCUTANEOUS
     Route: 058
     Dates: start: 20100511
  38. VIVAGLOBIN [Suspect]
     Indication: IMMUNODEFICIENCY COMMON VARIABLE
     Dosage: 9.6 G 2X/WEEK, STOP DAY MAY 2011 SUBCUTANEOUS, (9.6 G 2X/WEEK, STOP DAY MAY 2011 SUBCUTANEOUS
     Route: 058
     Dates: start: 20100511
  39. VIVAGLOBIN [Suspect]
     Indication: HYPOGAMMAGLOBULINAEMIA
     Dosage: 9.6 G 2X/WEEK, STOP DAY MAY 2011 SUBCUTANEOUS, (9.6 G 2X/WEEK, STOP DAY MAY 2011 SUBCUTANEOUS
     Route: 058
     Dates: start: 20100706
  40. VIVAGLOBIN [Suspect]
     Indication: IMMUNODEFICIENCY COMMON VARIABLE
     Dosage: 9.6 G 2X/WEEK, STOP DAY MAY 2011 SUBCUTANEOUS, (9.6 G 2X/WEEK, STOP DAY MAY 2011 SUBCUTANEOUS
     Route: 058
     Dates: start: 20100706
  41. VIVAGLOBIN [Suspect]
     Indication: HYPOGAMMAGLOBULINAEMIA
     Dosage: 9.6 G 2X/WEEK, STOP DAY MAY 2011 SUBCUTANEOUS, (9.6 G 2X/WEEK, STOP DAY MAY 2011 SUBCUTANEOUS
     Route: 058
     Dates: start: 20101122
  42. VIVAGLOBIN [Suspect]
     Indication: IMMUNODEFICIENCY COMMON VARIABLE
     Dosage: 9.6 G 2X/WEEK, STOP DAY MAY 2011 SUBCUTANEOUS, (9.6 G 2X/WEEK, STOP DAY MAY 2011 SUBCUTANEOUS
     Route: 058
     Dates: start: 20101122
  43. VIVAGLOBIN [Suspect]
     Indication: HYPOGAMMAGLOBULINAEMIA
     Dosage: 9.6 G 2X/WEEK, STOP DAY MAY 2011 SUBCUTANEOUS, (9.6 G 2X/WEEK, STOP DAY MAY 2011 SUBCUTANEOUS
     Route: 058
     Dates: start: 20110126
  44. VIVAGLOBIN [Suspect]
     Indication: IMMUNODEFICIENCY COMMON VARIABLE
     Dosage: 9.6 G 2X/WEEK, STOP DAY MAY 2011 SUBCUTANEOUS, (9.6 G 2X/WEEK, STOP DAY MAY 2011 SUBCUTANEOUS
     Route: 058
     Dates: start: 20110126
  45. VIVAGLOBIN [Suspect]
  46. VIVAGLOBIN [Suspect]
  47. VIVAGLOBIN [Suspect]
  48. VIVAGLOBIN [Suspect]
  49. VIVAGLOBIN [Suspect]
  50. VIVAGLOBIN [Suspect]
  51. 0 [Suspect]
  52. VIVAGLOBIN [Suspect]
  53. VIVAGLOBIN [Suspect]

REACTIONS (2)
  - HERPES SIMPLEX SEROLOGY POSITIVE [None]
  - TRANSMISSION OF AN INFECTIOUS AGENT VIA A MEDICINAL PRODUCT [None]
